FAERS Safety Report 10388944 (Version 1)
Quarter: 2014Q1

REPORT INFORMATION
  Report Type: Spontaneous
  Country: US (occurrence: None)
  Receive Date: 20140306
  Receipt Date: 20140306
  Transmission Date: 20141002
  Serious: Yes (Hospitalization, Other)
  Sender: FDA-Public Use
  Company Number: 163-21880-13115253

PATIENT
  Age: 75 Year
  Sex: Female

DRUGS (15)
  1. REVLIMID (LENALIDOMIDE) (25 MILLIGRAM, CAPSULES) [Suspect]
     Indication: PLASMA CELL MYELOMA
  2. DEXAMETHASONE (DEXAMETHASONE) [Concomitant]
  3. GABAPENTIN (GABAPENTIN) [Concomitant]
  4. LYRICA (PREGABALIN) [Concomitant]
  5. AREDIA (PAMIDRONATE DISODIUM) [Concomitant]
  6. CALTRATE 600 + D (CALCITE D) [Concomitant]
  7. CENTRUM SILVER (CENTRUM SILVER) [Concomitant]
  8. BUSPIRONE HCL (BUSPIRONE HYDROCHLORIDE) [Concomitant]
  9. CARBAMAZEPINE (CARBAMAZEPINE) [Concomitant]
  10. FLUOXETINE (FLUOXETINE) [Concomitant]
  11. ALLOPURINOL (ALLOPURINOL) [Concomitant]
  12. HYDROCODONE/ACETAMINOPHEN (REMEDEINE) [Concomitant]
  13. ASPIRIN EC [Concomitant]
  14. FENTANYL (FENTANYL) [Concomitant]
  15. AMLODIPINE BESYLATE (AMLODIPINE BESILATE) [Concomitant]

REACTIONS (3)
  - Dysarthria [None]
  - Fall [None]
  - Blood pressure increased [None]
